FAERS Safety Report 7053804-3 (Version None)
Quarter: 2010Q4

REPORT INFORMATION
  Report Type: 
  Country: None (occurrence: None)
  Receive Date: 20101020
  Receipt Date: 20101019
  Transmission Date: 20110411
  Serious: No
  Sender: FDA-Public Use
  Company Number: US-B.I. PHARMACEUTICALS,INC./RIDGEFIELD-2010-BP-00256BP

PATIENT
  Sex: Female

DRUGS (1)
  1. ZANTAC 75 [Suspect]
     Indication: BARRETT'S OESOPHAGUS
     Dosage: 150 MG
     Route: 048
     Dates: start: 20091101

REACTIONS (2)
  - ABNORMAL DREAMS [None]
  - ARTHRALGIA [None]
